FAERS Safety Report 8023106-7 (Version None)
Quarter: 2012Q1

REPORT INFORMATION
  Report Type: 
  Country: None (occurrence: None)
  Receive Date: 20120104
  Receipt Date: 20111227
  Transmission Date: 20120608
  Serious: Yes (Other)
  Sender: FDA-Public Use
  Company Number: CHPA2011US017947

PATIENT
  Age: 56 Year
  Sex: Female

DRUGS (3)
  1. DRUG THERAPY NOS [Concomitant]
     Indication: DYSPNOEA
  2. NICOTINE [Suspect]
     Indication: SMOKING CESSATION THERAPY
     Dosage: UNK, UNK
     Route: 062
  3. DRUG THERAPY NOS [Concomitant]
     Indication: ACID BASE BALANCE ABNORMAL

REACTIONS (12)
  - NEUROPATHY PERIPHERAL [None]
  - DRUG INEFFECTIVE [None]
  - ARTERIAL OCCLUSIVE DISEASE [None]
  - CONCUSSION [None]
  - HALLUCINATION [None]
  - VOMITING [None]
  - OVERDOSE [None]
  - TREATMENT NONCOMPLIANCE [None]
  - CHRONIC OBSTRUCTIVE PULMONARY DISEASE [None]
  - LOSS OF CONSCIOUSNESS [None]
  - FALL [None]
  - EMPHYSEMA [None]
